FAERS Safety Report 10695955 (Version 1)
Quarter: 2015Q1

REPORT INFORMATION
  Report Type: Spontaneous
  Country: US (occurrence: None)
  Receive Date: 20150106
  Receipt Date: 20150106
  Transmission Date: 20150721
  Serious: Yes (Disabling, Other)
  Sender: FDA-Public Use
  Company Number: None

PATIENT
  Age: 52 Year
  Sex: Female
  Weight: 131.54 kg

DRUGS (2)
  1. LEVAQUIN [Suspect]
     Active Substance: LEVOFLOXACIN
     Indication: INTESTINAL PERFORATION
     Route: 042
  2. CIPRO [Suspect]
     Active Substance: CIPROFLOXACIN HYDROCHLORIDE
     Indication: CYSTITIS
     Dosage: 2 PILLS
     Route: 048
     Dates: start: 20140412, end: 20140419

REACTIONS (2)
  - Polyarthritis [None]
  - Tendonitis [None]

NARRATIVE: CASE EVENT DATE: 20140412
